FAERS Safety Report 8996504 (Version 1)
Quarter: 2013Q1

REPORT INFORMATION
  Report Type: Spontaneous
  Country: IT (occurrence: IT)
  Receive Date: 20130104
  Receipt Date: 20130104
  Transmission Date: 20140127
  Serious: Yes (Other)
  Sender: FDA-Public Use
  Company Number: IT-009507513-1301ITA000572

PATIENT
  Age: 46 Year
  Sex: Female

DRUGS (3)
  1. LORATADINE [Suspect]
     Indication: SUICIDE ATTEMPT
     Dosage: 25 POSOLOGICAL UNITS, QD
     Route: 048
     Dates: start: 20121008, end: 20121008
  2. EN [Suspect]
     Indication: SUICIDE ATTEMPT
     Dosage: 20 ML,QD
     Route: 048
     Dates: start: 20121008, end: 20121008
  3. SPIRIVA [Concomitant]
     Indication: ASTHMA
     Dosage: UNK
     Route: 048

REACTIONS (3)
  - Suicide attempt [Recovering/Resolving]
  - Drug abuse [Unknown]
  - Sopor [Recovering/Resolving]
